FAERS Safety Report 12074934 (Version 1)
Quarter: 2016Q1

REPORT INFORMATION
  Report Type: Spontaneous
  Country: IT (occurrence: IT)
  Receive Date: 20160212
  Receipt Date: 20160212
  Transmission Date: 20160526
  Serious: Yes (Hospitalization)
  Sender: FDA-Public Use
  Company Number: IT-BAYER-2016-026610

PATIENT
  Age: 77 Year
  Sex: Male

DRUGS (14)
  1. SILODOSIN [Concomitant]
     Active Substance: SILODOSIN
     Dosage: DAILY DOSE 8 MG
  2. AVODART [Concomitant]
     Active Substance: DUTASTERIDE
     Dosage: DAILY DOSE .5 MG
  3. TRIATEC [Concomitant]
     Active Substance: RAMIPRIL
     Dosage: DAILY DOSE 2.5 MG
  4. SIVASTIN [Concomitant]
     Active Substance: SIMVASTATIN
     Dosage: DAILY DOSE 20 MG
  5. ALLOPURINOL. [Concomitant]
     Active Substance: ALLOPURINOL
  6. PLAVIX [Interacting]
     Active Substance: CLOPIDOGREL BISULFATE
     Indication: THROMBOSIS PROPHYLAXIS
     Route: 048
  7. SERTRALINE [Concomitant]
     Active Substance: SERTRALINE HYDROCHLORIDE
     Dosage: DAILY DOSE 50 MG
  8. PANTOPRAZOLE [Concomitant]
     Active Substance: PANTOPRAZOLE SODIUM
     Dosage: DAILY DOSE 40 MG
  9. RAMIPRIL. [Concomitant]
     Active Substance: RAMIPRIL
     Dosage: DAILY DOSE 5 MG
  10. BISOPROLOL HEMIFUMARATE [Concomitant]
     Active Substance: BISOPROLOL FUMARATE
     Dosage: DAILY DOSE 2.5 MG
  11. ACETYLSALICYLIC ACID({=100 MG) [Suspect]
     Active Substance: ASPIRIN
     Indication: THROMBOSIS PROPHYLAXIS
     Dosage: DAILY DOSE 100 MG
     Route: 048
     Dates: start: 20150101, end: 20150717
  12. PLAVIX [Interacting]
     Active Substance: CLOPIDOGREL BISULFATE
     Indication: THROMBOSIS PROPHYLAXIS
     Dosage: DAILY DOSE 75 MG
     Route: 048
     Dates: start: 20150101, end: 20150717
  13. HUMALOG [Concomitant]
     Active Substance: INSULIN LISPRO
     Dosage: DAILY DOSE 40 IU
  14. LANTUS [Concomitant]
     Active Substance: INSULIN GLARGINE
     Dosage: DAILY DOSE 20 IU

REACTIONS (2)
  - Dysuria [Recovering/Resolving]
  - Haematuria [Recovering/Resolving]

NARRATIVE: CASE EVENT DATE: 20150717
